FAERS Safety Report 16404253 (Version 2)
Quarter: 2019Q2

REPORT INFORMATION
  Report Type: Report from Study
  Country: BE (occurrence: BE)
  Receive Date: 20190607
  Receipt Date: 20190614
  Transmission Date: 20190711
  Serious: Yes (Hospitalization)
  Sender: FDA-Public Use
  Company Number: BE-TEVA-2019-BE-1060957

PATIENT
  Age: 56 Year
  Sex: Male

DRUGS (17)
  1. IRINOTECAN [Suspect]
     Active Substance: IRINOTECAN
     Indication: COLORECTAL CANCER METASTATIC
     Dosage: DAY 1 OF EACH 14 DAY CYCLE. MOST RECENT DOSE PRIOR TO AE 07 MAY 2019 (180 MG/M2)
     Route: 042
     Dates: start: 20181211
  2. ABT-165 [Suspect]
     Active Substance: INVESTIGATIONAL PRODUCT
     Indication: COLORECTAL CANCER METASTATIC
     Dosage: (2.5 MG/KG), NOT ADMINISTRED
     Route: 042
  3. DAFALGAN [Concomitant]
     Active Substance: ACETAMINOPHEN
     Indication: ABDOMINAL PAIN
  4. MITOSYL [Concomitant]
     Indication: ANORECTAL DISCOMFORT
     Dosage: APPLICATION (1 OTHER )
     Route: 061
     Dates: start: 20180529
  5. ZYPREXA [Concomitant]
     Active Substance: OLANZAPINE
     Indication: NAUSEA
  6. PANTOMED [Concomitant]
     Indication: ABDOMINAL PAIN UPPER
  7. DAFALGAN [Concomitant]
     Active Substance: ACETAMINOPHEN
     Indication: HEADACHE
     Dosage: 1 GM
     Route: 048
     Dates: start: 201805
  8. AMLOR [Concomitant]
     Active Substance: AMLODIPINE BESYLATE
     Indication: HYPERTENSION
     Dosage: 5 MG,1 IN 1 D
     Route: 048
     Dates: start: 20190122
  9. LEUCOVORIN. [Suspect]
     Active Substance: LEUCOVORIN
     Indication: COLORECTAL CANCER METASTATIC
     Dosage: DAY 1 OF EACH 14 DAY CYCLE. MOST RECENT DOSE PRIOR TO AE 07 MAY 2019 (400 MG/M2)
     Route: 042
     Dates: start: 20181211
  10. BEVACIZUMAB. [Suspect]
     Active Substance: BEVACIZUMAB
     Indication: COLORECTAL CANCER METASTATIC
     Dosage: DAY 1 OF EACH 14 DAY CYCLE. MOST RECENT DOSE PRIOR TO AE 07 MAY 2019 (5 MG/KG)
     Route: 042
     Dates: start: 20181211
  11. MEDICA (CATHEJELL LIDOCAIN) [Concomitant]
     Indication: OROPHARYNGEAL PAIN
     Dosage: 5/1MG
     Route: 048
     Dates: start: 20190122
  12. 5-FLUOROURACIL [Suspect]
     Active Substance: FLUOROURACIL
     Indication: COLORECTAL CANCER METASTATIC
     Dosage: 400 MG/M2
     Route: 040
     Dates: start: 20181211
  13. LITICAN [Concomitant]
     Active Substance: ALIZAPRIDE HYDROCHLORIDE
     Indication: NAUSEA
     Dosage: 50 MG
     Route: 048
     Dates: start: 20180524
  14. 5-FLUOROURACIL [Suspect]
     Active Substance: FLUOROURACIL
     Dosage: (CONTINUOUS INFUSION OVER 46-48 HOURS) (2400 MG/M2)
     Route: 042
     Dates: start: 20181211
  15. FORLAX(MACROGOL 4000) [Concomitant]
     Indication: CONSTIPATION
     Dosage: 1 OTHER,
     Route: 048
     Dates: start: 20180529
  16. PANTOMED [Concomitant]
     Indication: PROPHYLAXIS
     Dosage: 40 MG,1 IN 1 D
     Route: 048
     Dates: start: 20180604
  17. ZYPREXA [Concomitant]
     Active Substance: OLANZAPINE
     Indication: NAUSEA
     Dosage: 5 MG,1 IN 1 D
     Route: 048
     Dates: start: 20190122

REACTIONS (1)
  - Dehydration [Recovered/Resolved]

NARRATIVE: CASE EVENT DATE: 20190509
